FAERS Safety Report 20574562 (Version 1)
Quarter: 2022Q1

REPORT INFORMATION
  Report Type: Spontaneous
  Country: DE (occurrence: DE)
  Receive Date: 20220309
  Receipt Date: 20220309
  Transmission Date: 20220424
  Serious: Yes (Other)
  Sender: FDA-Public Use
  Company Number: DE-PFIZER INC-202200338315

PATIENT
  Age: 80 Year
  Sex: Male

DRUGS (1)
  1. TAFAMIDIS [Suspect]
     Active Substance: TAFAMIDIS
     Dosage: 61 MG

REACTIONS (3)
  - Bundle branch block left [Unknown]
  - Ejection fraction decreased [Unknown]
  - Dyspnoea exertional [Unknown]
